FAERS Safety Report 26140219 (Version 2)
Quarter: 2025Q4

REPORT INFORMATION
  Report Type: Spontaneous
  Country: EU (occurrence: EU)
  Receive Date: 20251210
  Receipt Date: 20251218
  Transmission Date: 20260117
  Serious: Yes (Other)
  Sender: PFIZER
  Company Number: EU-AMGEN-AUTSP2025232907

PATIENT
  Age: 64 Year
  Sex: Male

DRUGS (2)
  1. RITUXIMAB [Suspect]
     Active Substance: RITUXIMAB
     Indication: Acute lymphocytic leukaemia
     Dosage: UNK
     Dates: start: 202404, end: 202408
  2. BLINCYTO [Suspect]
     Active Substance: BLINATUMOMAB
     Indication: B precursor type acute leukaemia
     Dosage: 28 MICROGRAM, QD
     Route: 065
     Dates: start: 202408, end: 202502

REACTIONS (18)
  - Staphylococcal bacteraemia [Unknown]
  - Polyneuropathy [Unknown]
  - Off label use [Unknown]
  - Device related infection [Unknown]
  - Monoparesis [Unknown]
  - Pyrexia [Unknown]
  - Jugular vein thrombosis [Unknown]
  - Blood uric acid increased [Unknown]
  - Aspartate aminotransferase increased [Unknown]
  - Alanine aminotransferase increased [Unknown]
  - Gamma-glutamyltransferase increased [Unknown]
  - Blood bilirubin increased [Unknown]
  - Blood alkaline phosphatase increased [Unknown]
  - Blood glucose increased [Unknown]
  - Blood lactate dehydrogenase increased [Unknown]
  - Total cholesterol/HDL ratio decreased [Unknown]
  - Blood triglycerides increased [Unknown]
  - Protein total increased [Unknown]

NARRATIVE: CASE EVENT DATE: 20250801
